FAERS Safety Report 4474529-4 (Version None)
Quarter: 2004Q3

REPORT INFORMATION
  Report Type: 
  Country: None (occurrence: None)
  Receive Date: 20040923
  Receipt Date: 20040706
  Transmission Date: 20050211
  Serious: No
  Sender: FDA-Public Use
  Company Number: USA040771742

PATIENT
  Age: 80 Year
  Sex: Female
  Weight: 44 kg

DRUGS (7)
  1. FORTEO [Suspect]
     Indication: OSTEOPOROSIS
     Dosage: 20 UG DAY
     Dates: start: 20040702
  2. EXTRA STRENGTH TYLENOL [Concomitant]
  3. MULTI-VITAMIN [Concomitant]
  4. CALCIUM [Concomitant]
  5. TYLENOL W/ CODEINE [Concomitant]
  6. TUMS (CALCIUM CARBONATE) [Concomitant]
  7. PRILOSEC [Concomitant]

REACTIONS (4)
  - BURNING SENSATION [None]
  - INFLAMMATION [None]
  - PAIN [None]
  - SENSATION OF HEAVINESS [None]
